FAERS Safety Report 16179141 (Version 1)
Quarter: 2019Q2

REPORT INFORMATION
  Report Type: Spontaneous
  Country: CA (occurrence: CA)
  Receive Date: 20190410
  Receipt Date: 20190410
  Transmission Date: 20190711
  Serious: Yes (Hospitalization, Other)
  Sender: FDA-Public Use
  Company Number: CA-009507513-1904CAN003835

PATIENT
  Age: 56 Year
  Sex: Female
  Weight: 69 kg

DRUGS (10)
  1. ASPIRIN. [Suspect]
     Active Substance: ASPIRIN
     Indication: PRODUCT USED FOR UNKNOWN INDICATION
     Dosage: 80.0 MILLIGRAM, 1 EVERY 1 DAY(S)
     Route: 048
  2. IRBESARTAN SANDOZ [Suspect]
     Active Substance: IRBESARTAN
     Indication: HYPERTENSION
     Dosage: 300.0 MILLIGRAM, 1 EVERY 1 DAY(S)
     Route: 048
  3. JANUVIA [Suspect]
     Active Substance: SITAGLIPTIN PHOSPHATE
     Indication: PRODUCT USED FOR UNKNOWN INDICATION
     Dosage: 100.0 MILLIGRAM, 1 EVERY 1 DAY(S)
     Route: 048
  4. AMLODIPINE BESYLATE. [Suspect]
     Active Substance: AMLODIPINE BESYLATE
     Dosage: 5.0 MILLIGRAM, 1 EVERY 1 DAY(S)
     Route: 048
  5. LIPITOR [Suspect]
     Active Substance: ATORVASTATIN CALCIUM
     Indication: PRODUCT USED FOR UNKNOWN INDICATION
     Dosage: 20.0 MILLIGRAM, 1 EVERY 1 DAY(S)
     Route: 048
  6. METFORMIN HYDROCHLORIDE. [Suspect]
     Active Substance: METFORMIN HYDROCHLORIDE
     Indication: PRODUCT USED FOR UNKNOWN INDICATION
     Dosage: 850.0 MILLIGRAM, 3 EVERY 1 DAY(S)
     Route: 048
  7. AMLODIPINE BESYLATE. [Suspect]
     Active Substance: AMLODIPINE BESYLATE
     Indication: PRODUCT USED FOR UNKNOWN INDICATION
     Dosage: 5.0 MILLIGRAM, 1 EVERY 1 DAY(S)
     Route: 048
  8. ESOMEPRAZOLE MAGNESIUM. [Suspect]
     Active Substance: ESOMEPRAZOLE MAGNESIUM
     Indication: PRODUCT USED FOR UNKNOWN INDICATION
     Dosage: 40.0 MILLIGRAM, 1 EVERY 1 DAY(S)
     Route: 048
  9. IRBESARTAN. [Suspect]
     Active Substance: IRBESARTAN
     Indication: HYPERTENSION
     Dosage: 300.0 MILLIGRAM, 1 EVERY 1 DAY(S)
     Route: 048
  10. ALISKIREN FUMARATE [Suspect]
     Active Substance: ALISKIREN HEMIFUMARATE
     Indication: HYPERTENSION
     Dosage: 150.0 MILLIGRAM, 1 EVERY 1 DAY(S)
     Route: 048

REACTIONS (12)
  - Affect lability [Unknown]
  - Dysphagia [Unknown]
  - Personality disorder [Unknown]
  - Confusional state [Unknown]
  - Hemiparesis [Unknown]
  - Muscle spasticity [Unknown]
  - Muscular weakness [Unknown]
  - Aphasia [Unknown]
  - Cerebrovascular accident [Unknown]
  - Anxiety [Unknown]
  - Hemiplegia [Unknown]
  - Impaired work ability [Unknown]
